FAERS Safety Report 13205258 (Version 1)
Quarter: 2017Q1

REPORT INFORMATION
  Report Type: Spontaneous
  Country: PL (occurrence: PL)
  Receive Date: 20170209
  Receipt Date: 20170209
  Transmission Date: 20170428
  Serious: Yes (Death, Life-Threatening, Hospitalization)
  Sender: FDA-Public Use
  Company Number: PL-PFIZER INC-2017052916

PATIENT
  Age: 67 Year
  Sex: Female

DRUGS (4)
  1. CARBOPLATIN. [Suspect]
     Active Substance: CARBOPLATIN
     Indication: BRONCHIAL CARCINOMA
     Dosage: THE TOTAL DOSE OF CARBOPLATINE: 560, DOSE UNIT: UNKNOWN
     Route: 042
     Dates: start: 20160926, end: 20160926
  2. ETOPOSID EBEWE [Suspect]
     Active Substance: ETOPOSIDE
     Indication: BRONCHIAL CARCINOMA
     Dosage: DOSE: 170, DOSE UNIT: UNKNOWN
     Route: 042
     Dates: start: 20160926, end: 20160926
  3. ETOPOSID EBEWE [Suspect]
     Active Substance: ETOPOSIDE
     Indication: LUNG NEOPLASM MALIGNANT
  4. CARBOPLATIN. [Suspect]
     Active Substance: CARBOPLATIN
     Indication: LUNG NEOPLASM MALIGNANT
     Dosage: THE TOTAL DOSE OF CARBOPLATINE: 560, DOSE UNIT: UNKNOWN
     Route: 042
     Dates: start: 20160926, end: 20160926

REACTIONS (1)
  - Urosepsis [Fatal]

NARRATIVE: CASE EVENT DATE: 20161015
